FAERS Safety Report 4571488-0 (Version None)
Quarter: 2005Q1

REPORT INFORMATION
  Report Type: 
  Country: None (occurrence: None)
  Receive Date: 20050118
  Receipt Date: 20040720
  Transmission Date: 20050727
  Serious: Yes (Hospitalization)
  Sender: FDA-Public Use
  Company Number: HQWYE169012MAY03

PATIENT
  Sex: Female

DRUGS (5)
  1. PREMPRO (CONJUGATED ESTROGENS/MEDROXYPROGESTERONE ACETATE, UNSPEC) [Suspect]
     Dosage: ORAL
     Route: 048
  2. ESTROGEN NOS (ESTROGEN NOS,   ) [Suspect]
  3. MEDROXYPROGESTERONE ACETATE [Suspect]
  4. PREMARIN [Suspect]
  5. PROVERA [Suspect]

REACTIONS (2)
  - PULMONARY EMBOLISM [None]
  - THROMBOSIS [None]
